FAERS Safety Report 7562640-0 (Version None)
Quarter: 2011Q2

REPORT INFORMATION
  Report Type: 
  Country: None (occurrence: None)
  Receive Date: 20110622
  Receipt Date: 20110613
  Transmission Date: 20111010
  Serious: Yes (Hospitalization)
  Sender: FDA-Public Use
  Company Number: JP-SANOFI-AVENTIS-2011SA025784

PATIENT
  Age: 45 Year
  Sex: Female

DRUGS (1)
  1. ZOLPIDEM [Suspect]
     Route: 048
     Dates: start: 20110414, end: 20110414

REACTIONS (4)
  - COMA [None]
  - INTENTIONAL OVERDOSE [None]
  - PYRAMIDAL TRACT SYNDROME [None]
  - SUICIDE ATTEMPT [None]
